FAERS Safety Report 6578993-6 (Version None)
Quarter: 2010Q1

REPORT INFORMATION
  Report Type: 
  Country: None (occurrence: None)
  Receive Date: 20100212
  Receipt Date: 20100205
  Transmission Date: 20100710
  Serious: Yes (Hospitalization)
  Sender: FDA-Public Use
  Company Number: DE-TEVA-221432ISR

PATIENT
  Sex: Female
  Weight: 71 kg

DRUGS (5)
  1. IRINOTECAN HCL [Suspect]
     Indication: COLORECTAL CANCER METASTATIC
     Dosage: 1 *DAY
     Route: 042
     Dates: start: 20090518, end: 20090824
  2. FOLINIC ACID [Suspect]
     Indication: COLORECTAL CANCER METASTATIC
     Dosage: 1 *DAY
     Route: 042
     Dates: start: 20090518, end: 20090824
  3. FLUOROURACIL [Suspect]
     Indication: COLORECTAL CANCER METASTATIC
     Route: 040
     Dates: start: 20090518, end: 20090824
  4. FLUOROURACIL [Suspect]
     Route: 042
     Dates: start: 20090518, end: 20090824
  5. SUNITINIB MALATE [Suspect]
     Indication: COLORECTAL CANCER METASTATIC
     Route: 048
     Dates: start: 20090518, end: 20090824

REACTIONS (5)
  - CONDITION AGGRAVATED [None]
  - GENERAL PHYSICAL HEALTH DETERIORATION [None]
  - POLYNEUROPATHY [None]
  - SKIN ULCER [None]
  - TRANSIENT ISCHAEMIC ATTACK [None]
